FAERS Safety Report 5523499-6 (Version None)
Quarter: 2007Q4

REPORT INFORMATION
  Report Type: 
  Country: None (occurrence: None)
  Receive Date: 20071121
  Receipt Date: 20071119
  Transmission Date: 20080405
  Serious: Yes (Other)
  Sender: FDA-Public Use
  Company Number: IT-BRISTOL-MYERS SQUIBB COMPANY-13989066

PATIENT
  Age: 70 Year
  Sex: Male

DRUGS (8)
  1. IFOSFAMIDE [Suspect]
     Indication: MULTIPLE MYELOMA
     Dosage: 1 DF= 2.5G/M2 ON DAYS 1-3
  2. DOXORUBICIN HCL [Suspect]
     Indication: MULTIPLE MYELOMA
  3. VINCRISTINE SULFATE [Suspect]
     Indication: MULTIPLE MYELOMA
  4. ETOPOSIDE [Suspect]
     Indication: MULTIPLE MYELOMA
     Dosage: 1 DF= 150 MG/M2 ON DAYS 1-3
  5. MESNA [Suspect]
     Indication: MULTIPLE MYELOMA
  6. MELPHALAN [Suspect]
     Indication: MULTIPLE MYELOMA
  7. EPIRUBICIN [Suspect]
     Indication: MULTIPLE MYELOMA
     Dosage: 1 DF= 100MG/M2 ON DAYS 1
  8. DEXAMETHASONE [Suspect]
     Indication: MULTIPLE MYELOMA

REACTIONS (3)
  - CONFUSIONAL STATE [None]
  - DISORIENTATION [None]
  - ENCEPHALOPATHY [None]
